FAERS Safety Report 6649312-1 (Version None)
Quarter: 2010Q1

REPORT INFORMATION
  Report Type: 
  Country: None (occurrence: None)
  Receive Date: 20100324
  Receipt Date: 20100317
  Transmission Date: 20100710
  Serious: Yes (Other)
  Sender: FDA-Public Use
  Company Number: GB-SP-2010-01698

PATIENT
  Sex: Male

DRUGS (1)
  1. IMMUCYST [Suspect]
     Indication: BLADDER CANCER
     Route: 043
     Dates: start: 20081209, end: 20100204

REACTIONS (3)
  - BLADDER IRRITATION [None]
  - HYPERTENSION [None]
  - ORAL HERPES [None]
